FAERS Safety Report 16785359 (Version 3)
Quarter: 2019Q3

REPORT INFORMATION
  Report Type: Spontaneous
  Country: NL (occurrence: NL)
  Receive Date: 20190909
  Receipt Date: 20190921
  Transmission Date: 20191005
  Serious: Yes (Hospitalization, Other)
  Sender: FDA-Public Use
  Company Number: NL-009507513-1909NLD000893

PATIENT
  Age: 72 Year
  Sex: Male

DRUGS (1)
  1. BCG LIVE [Suspect]
     Active Substance: BACILLUS CALMETTE-GUERIN SUBSTRAIN TICE LIVE ANTIGEN
     Indication: BLADDER CANCER STAGE 0, WITH CANCER IN SITU
     Dosage: 7 INSTILLATIONS PRIOR TO EVENTS
     Route: 043

REACTIONS (3)
  - Pneumonitis [Recovered/Resolved]
  - Splenomegaly [Recovered/Resolved]
  - Urinary tract infection [Recovered/Resolved]
